FAERS Safety Report 6173100-6 (Version None)
Quarter: 2009Q2

REPORT INFORMATION
  Report Type: 
  Country: None (occurrence: None)
  Receive Date: 20090430
  Receipt Date: 20090423
  Transmission Date: 20091009
  Serious: Yes (Hospitalization)
  Sender: FDA-Public Use
  Company Number: BR-ASTRAZENECA-2009UW10283

PATIENT
  Age: 68 Year
  Sex: Male

DRUGS (3)
  1. SEROQUEL [Suspect]
     Indication: DEPRESSION
     Route: 048
     Dates: start: 20060101
  2. SEROQUEL [Suspect]
     Route: 048
     Dates: start: 20080101
  3. CARBAMAZEPINE [Concomitant]
     Indication: DEPRESSION
     Route: 048
     Dates: start: 20060101

REACTIONS (4)
  - BURSITIS [None]
  - DEPRESSION [None]
  - FALL [None]
  - TENDON RUPTURE [None]
